FAERS Safety Report 16236238 (Version 1)
Quarter: 2019Q2

REPORT INFORMATION
  Report Type: Spontaneous
  Country: US (occurrence: US)
  Receive Date: 20190425
  Receipt Date: 20190425
  Transmission Date: 20190711
  Serious: No
  Sender: FDA-Public Use
  Company Number: US-SENTYNL THERAPEUTICS, INC.  -2066199

PATIENT
  Age: 62 Year
  Sex: Female

DRUGS (2)
  1. LEVORPHANOL TARTRATE. [Suspect]
     Active Substance: LEVORPHANOL TARTRATE
     Indication: LUMBAR SPINAL STENOSIS
     Route: 048
     Dates: start: 20171222
  2. VICTOZA [Suspect]
     Active Substance: LIRAGLUTIDE

REACTIONS (2)
  - Blood glucose decreased [Unknown]
  - Disturbance in attention [Not Recovered/Not Resolved]
